FAERS Safety Report 4621368-7 (Version None)
Quarter: 2005Q1

REPORT INFORMATION
  Report Type: 
  Country: None (occurrence: None)
  Receive Date: 20050328
  Receipt Date: 20050314
  Transmission Date: 20050727
  Serious: No
  Sender: FDA-Public Use
  Company Number: B0374507A

PATIENT
  Age: 41 Year
  Sex: Female

DRUGS (7)
  1. ALKERAN [Suspect]
  2. CARMUSTINE [Suspect]
  3. ETOPOSIDE [Suspect]
  4. CYTARABINE [Suspect]
  5. ALEMTUZUMAB (FORMULATION UNKNOWN) (ALEMTUZUMAB) [Suspect]
     Dosage: 20 MG / PER DAY /
  6. CYCLOSPORINE [Concomitant]
  7. METHOTREXATE [Concomitant]

REACTIONS (2)
  - ANAEMIA HAEMOLYTIC AUTOIMMUNE [None]
  - AUTOIMMUNE THROMBOCYTOPENIA [None]
